FAERS Safety Report 8600617-4 (Version None)
Quarter: 2012Q3

REPORT INFORMATION
  Report Type: 
  Country: None (occurrence: None)
  Receive Date: 20120817
  Receipt Date: 20120807
  Transmission Date: 20120928
  Serious: Yes (Other)
  Sender: FDA-Public Use
  Company Number: BR-JNJFOC-20120803864

PATIENT
  Sex: Female
  Weight: 87 kg

DRUGS (4)
  1. MICRONOR [Suspect]
     Indication: CONTRACEPTION
     Dosage: 3 YEARS AGO
     Route: 048
     Dates: start: 20090401
  2. SERTRALINE HYDROCHLORIDE [Concomitant]
     Indication: DEPRESSION
     Route: 065
     Dates: start: 20120101
  3. DIAZEPAM [Concomitant]
     Indication: ANXIETY
     Route: 065
     Dates: start: 20120101
  4. ATENOLOL [Concomitant]
     Indication: HYPERTENSION
     Route: 065
     Dates: start: 20120801

REACTIONS (1)
  - HYPERTENSIVE CRISIS [None]
